FAERS Safety Report 5274928-7 (Version None)
Quarter: 2007Q1

REPORT INFORMATION
  Report Type: 
  Country: None (occurrence: None)
  Receive Date: 20061208
  Receipt Date: 20060417
  Transmission Date: 20070707
  Serious: Yes (Hospitalization)
  Sender: FDA-Public Use
  Company Number: 2006UW06747

PATIENT
  Age: 48 Year
  Sex: Female
  Weight: 54.431 kg

DRUGS (4)
  1. CRESTOR [Suspect]
     Indication: BLOOD CHOLESTEROL INCREASED
     Dosage: 10 MG PO
     Route: 048
     Dates: start: 20050901
  2. NEXIUM [Concomitant]
  3. ASPIRIN [Concomitant]
  4. VITAMINS [Concomitant]

REACTIONS (1)
  - PANCREATITIS [None]
